FAERS Safety Report 4452810-2 (Version None)
Quarter: 2004Q3

REPORT INFORMATION
  Report Type: 
  Country: None (occurrence: None)
  Receive Date: 20040916
  Receipt Date: 20040902
  Transmission Date: 20050211
  Serious: Yes (Hospitalization, Disabling)
  Sender: FDA-Public Use
  Company Number: 2004-BP-05280NB

PATIENT
  Age: 85 Year
  Sex: Female

DRUGS (7)
  1. BI-SIFROL TABLETS (PRAMIPEXOLE DIHYDROCHLORIDE) (TA) [Suspect]
     Indication: PARKINSON'S DISEASE
     Dosage: 0.5 MG PO
     Route: 048
     Dates: start: 20040617, end: 20040626
  2. BUP-4 (PROPIVERINE HYDROCHLORIDE) (TA) [Concomitant]
  3. MEVALOTIN (PRAVASTATIN SODIUM) (TA) [Concomitant]
  4. NEODOPASTON (TA) [Concomitant]
  5. SYMMETREL (AMANTADINE HYDROCHLORIDE) (TA) [Concomitant]
  6. NATRIX (INDAPAMIDE) (TA) [Concomitant]
  7. DOPS (DROXIDOPA) (KA) [Concomitant]

REACTIONS (6)
  - ANOREXIA [None]
  - DYSPHAGIA [None]
  - INAPPROPRIATE ANTIDIURETIC HORMONE SECRETION [None]
  - MUSCLE ATROPHY [None]
  - MUSCULAR WEAKNESS [None]
  - PERSONALITY CHANGE [None]
